FAERS Safety Report 6906631-9 (Version None)
Quarter: 2010Q3

REPORT INFORMATION
  Report Type: 
  Country: None (occurrence: None)
  Receive Date: 20100708
  Receipt Date: 20090212
  Transmission Date: 20110219
  Serious: Yes (Other)
  Sender: FDA-Public Use
  Company Number: 2008062116

PATIENT
  Age: 64 Year
  Sex: Female
  Weight: 68 kg

DRUGS (14)
  1. CHANTIX [Suspect]
     Indication: SMOKING CESSATION THERAPY
     Dosage: 1 MG, 2X/DAY, ORAL
     Route: 048
     Dates: start: 20080601, end: 20080711
  2. OXYCODONE HCL [Concomitant]
  3. NORTIRIPTYLINE (NORTRIPTYLINE) [Concomitant]
  4. PREVACID [Concomitant]
  5. LORAZEPAM [Concomitant]
  6. OXYCONTIN [Concomitant]
  7. ALL OTHER THERAPEUTIC PRODUCTS [Concomitant]
  8. AMITRIPTYLINE HYDROCHLORIDE [Concomitant]
  9. EFFEXOR (VENLAFAXINE, OXYCODONE HYDROCHLORIDE) [Concomitant]
  10. VITAMIN B COMPLEX TAB [Concomitant]
  11. CALCIUM (CALCIUM) [Concomitant]
  12. VITAMINS [Concomitant]
  13. NEURONTIN [Concomitant]
  14. LIPITOR [Suspect]
     Dosage: 10 MG, 1X/DAY

REACTIONS (4)
  - AMNESIA [None]
  - BLOOD CHOLESTEROL INCREASED [None]
  - OROPHARYNGEAL PAIN [None]
  - PSYCHOTIC DISORDER [None]
